FAERS Safety Report 5336496-0 (Version None)
Quarter: 2007Q2

REPORT INFORMATION
  Report Type: 
  Country: None (occurrence: None)
  Receive Date: 20070529
  Receipt Date: 20070515
  Transmission Date: 20071010
  Serious: Yes (Hospitalization, Other)
  Sender: FDA-Public Use
  Company Number: US-ELI_LILLY_AND_COMPANY-US200703002445

PATIENT
  Age: 44 Year
  Sex: Male
  Weight: 113.38 kg

DRUGS (4)
  1. ZYPREXA [Suspect]
     Indication: DEPRESSION
     Dosage: 20 MG, UNKNOWN
     Route: 065
     Dates: start: 20030101
  2. ZIPRASIDONE [Concomitant]
     Dates: start: 20050301, end: 20050101
  3. CELEXA [Concomitant]
     Dates: start: 20060101, end: 20060101
  4. ZOLOFT [Concomitant]
     Dates: start: 19980101

REACTIONS (6)
  - BLOOD CHOLESTEROL ABNORMAL [None]
  - BLOOD TRIGLYCERIDES INCREASED [None]
  - CEREBRAL HAEMORRHAGE [None]
  - DIABETES MELLITUS NON-INSULIN-DEPENDENT [None]
  - DIABETIC KETOACIDOSIS [None]
  - METABOLIC DISORDER [None]
